FAERS Safety Report 11256905 (Version 1)
Quarter: 2015Q3

REPORT INFORMATION
  Report Type: Spontaneous
  Country: US (occurrence: US)
  Receive Date: 20150709
  Receipt Date: 20150709
  Transmission Date: 20151125
  Serious: No
  Sender: FDA-Public Use
  Company Number: US-PURDUE-USA-2014-0119558

PATIENT
  Age: 73 Year
  Sex: Male

DRUGS (1)
  1. BUTRANS [Suspect]
     Active Substance: BUPRENORPHINE
     Indication: PRODUCT USED FOR UNKNOWN INDICATION
     Dosage: UNK MCG/HR, WEEKLY
     Route: 062

REACTIONS (7)
  - Discomfort [Unknown]
  - Malaise [Unknown]
  - Vomiting [Recovered/Resolved]
  - Rash [Unknown]
  - Skin irritation [Unknown]
  - Nausea [Recovered/Resolved]
  - Burning sensation [Unknown]
